FAERS Safety Report 11347821 (Version 1)
Quarter: 2015Q3

REPORT INFORMATION
  Report Type: Spontaneous
  Country: US (occurrence: US)
  Receive Date: 20150803
  Receipt Date: 20150803
  Transmission Date: 20151125
  Serious: No
  Sender: FDA-Public Use
  Company Number: US-ELI_LILLY_AND_COMPANY-US201111000095

PATIENT
  Sex: Female

DRUGS (3)
  1. ZYPREXA [Suspect]
     Active Substance: OLANZAPINE
     Indication: BIPOLAR I DISORDER
     Dosage: 20 MG, QD
  2. ASENAPINE [Concomitant]
     Active Substance: ASENAPINE
  3. ZYPREXA [Suspect]
     Active Substance: OLANZAPINE
     Dosage: 20 MG, QD

REACTIONS (4)
  - Mania [Unknown]
  - Drug ineffective [Unknown]
  - Sedation [Unknown]
  - Intentional product misuse [Recovered/Resolved]
